FAERS Safety Report 7157840-8 (Version None)
Quarter: 2010Q4

REPORT INFORMATION
  Report Type: 
  Country: None (occurrence: None)
  Receive Date: 20101214
  Receipt Date: 20100927
  Transmission Date: 20110411
  Serious: No
  Sender: FDA-Public Use
  Company Number: A0883469A

PATIENT
  Age: 68 Year
  Sex: Female

DRUGS (1)
  1. NICORETTE (MINT) [Suspect]
     Indication: PRODUCT USED FOR UNKNOWN INDICATION

REACTIONS (3)
  - CARDIAC DISORDER [None]
  - CHEST PAIN [None]
  - DRUG ADMINISTRATION ERROR [None]
